FAERS Safety Report 8544026-5 (Version None)
Quarter: 2012Q3

REPORT INFORMATION
  Report Type: 
  Country: None (occurrence: None)
  Receive Date: 20120727
  Receipt Date: 20120720
  Transmission Date: 20120928
  Serious: Yes (Other)
  Sender: FDA-Public Use
  Company Number: US-PFIZER INC-2012135233

PATIENT
  Sex: Male
  Weight: 104.31 kg

DRUGS (7)
  1. LUNESTA [Concomitant]
     Indication: SLEEP DISORDER
     Dosage: 3 MG TABLET, 1/2-1 TABLET AT BEDTIME AS NEEDED
  2. PRISTIQ [Suspect]
     Indication: OBSESSIVE-COMPULSIVE DISORDER
     Dosage: 50 MG, ONCE DAILY
     Route: 048
     Dates: start: 20111018, end: 20120101
  3. PRISTIQ [Suspect]
     Dosage: 50 MG, ALTERNATE DAY
     Route: 048
     Dates: start: 20120101, end: 20120101
  4. PRISTIQ [Suspect]
     Dosage: 50 MG, ALTERNATE DAY
     Route: 048
     Dates: start: 20120101
  5. XANAX [Concomitant]
     Dosage: 0.5 MG TABLET,1/2-1 TABLET ONCE DAILY AS NEEDED
  6. VYVANSE [Concomitant]
     Indication: ATTENTION DEFICIT/HYPERACTIVITY DISORDER
     Dosage: 40 MG, DAILY
  7. PRISTIQ [Suspect]
     Dosage: 50 MG, DAILY
     Route: 048
     Dates: start: 20120516, end: 20120101

REACTIONS (7)
  - OFF LABEL USE [None]
  - FEELING ABNORMAL [None]
  - CONFUSIONAL STATE [None]
  - IMPAIRED WORK ABILITY [None]
  - DRUG DEPENDENCE [None]
  - ANXIETY [None]
  - DRUG INTOLERANCE [None]
